FAERS Safety Report 4646432-8 (Version None)
Quarter: 2005Q2

REPORT INFORMATION
  Report Type: 
  Country: None (occurrence: None)
  Receive Date: 20050426
  Receipt Date: 20050310
  Transmission Date: 20051028
  Serious: Yes (Other)
  Sender: FDA-Public Use
  Company Number: 2005S1001162

PATIENT
  Age: 28 Year
  Sex: Female
  Weight: 43.9989 kg

DRUGS (8)
  1. FENTANYL [Suspect]
     Indication: HEADACHE
     Dosage: 25 MCG/HR;X1; TDER
     Route: 062
     Dates: start: 20050304, end: 20050305
  2. XANAX [Concomitant]
  3. VISTARIL [Concomitant]
  4. PSEUDOEPHEDRINE HCL [Concomitant]
  5. HYDROCHLORIDE / CETIRIZINE HYDROCHLORIDE [Concomitant]
  6. ADVAIR DISKUS 100/50 [Concomitant]
  7. ALBUTEROL [Concomitant]
  8. SOMA [Concomitant]

REACTIONS (5)
  - FEELING HOT [None]
  - HALLUCINATION [None]
  - INSOMNIA [None]
  - TRANSIENT ISCHAEMIC ATTACK [None]
  - VOMITING [None]
